FAERS Safety Report 16838211 (Version 1)
Quarter: 2019Q3

REPORT INFORMATION
  Report Type: Spontaneous
  Country: US (occurrence: US)
  Receive Date: 20190731
  Receipt Date: 20190731
  Transmission Date: 20191005
  Serious: Yes (Life-Threatening, Hospitalization, Disabling)
  Sender: FDA-Public Use
  Company Number: None

PATIENT
  Age: 54 Year
  Sex: Female
  Weight: 81.65 kg

DRUGS (2)
  1. HUMIRA [Suspect]
     Active Substance: ADALIMUMAB
     Indication: PSORIATIC ARTHROPATHY
     Dosage: ?          OTHER FREQUENCY:2 TIMES A MONTH;?
     Dates: start: 20091118, end: 20181016
  2. WOMEN^S MULTI VITAMIN [Concomitant]

REACTIONS (9)
  - Dysgraphia [None]
  - Dizziness [None]
  - Memory impairment [None]
  - Demyelination [None]
  - Gait disturbance [None]
  - Blindness transient [None]
  - Vertigo [None]
  - Fatigue [None]
  - Muscle fatigue [None]

NARRATIVE: CASE EVENT DATE: 20181027
